FAERS Safety Report 19562275 (Version 1)
Quarter: 2021Q3

REPORT INFORMATION
  Report Type: Spontaneous
  Country: US (occurrence: US)
  Receive Date: 20210714
  Receipt Date: 20210714
  Transmission Date: 20211014
  Serious: Yes (Hospitalization, Other)
  Sender: FDA-Public Use
  Company Number: US-ELI_LILLY_AND_COMPANY-US202107002071

PATIENT
  Age: 74 Year
  Sex: Male

DRUGS (4)
  1. HUMULIN N [Suspect]
     Active Substance: INSULIN HUMAN
     Dosage: 120 U, DAILY
     Route: 065
  2. GLUCOPHAGE [Concomitant]
     Active Substance: METFORMIN HYDROCHLORIDE
     Indication: DIABETES MELLITUS
  3. NOVOLIN R [Suspect]
     Active Substance: INSULIN HUMAN
     Indication: DIABETES MELLITUS
     Dosage: UNK UNK, UNKNOWN
     Route: 065
  4. HUMULIN N [Suspect]
     Active Substance: INSULIN HUMAN
     Indication: DIABETES MELLITUS
     Dosage: 120 U, DAILY
     Dates: start: 2001

REACTIONS (6)
  - Head discomfort [Unknown]
  - Wound infection [Recovering/Resolving]
  - Tongue neoplasm [Recovered/Resolved]
  - Limb injury [Recovering/Resolving]
  - Glossitis [Recovered/Resolved]
  - Tooth fracture [Recovered/Resolved]

NARRATIVE: CASE EVENT DATE: 202009
